FAERS Safety Report 8057936-2 (Version None)
Quarter: 2011Q4

REPORT INFORMATION
  Report Type: 
  Country: None (occurrence: None)
  Receive Date: 20111220
  Receipt Date: 20110513
  Transmission Date: 20120403
  Serious: Yes (Hospitalization)
  Sender: FDA-Public Use
  Company Number: PHHY2011US28016

PATIENT
  Age: 57 Year
  Sex: Male

DRUGS (1)
  1. MYFORTIC [Suspect]
     Indication: COMPLICATIONS OF TRANSPLANTED KIDNEY
     Dosage: 720 MG,  ORAL
     Route: 048
     Dates: start: 20100126

REACTIONS (1)
  - DIABETES MELLITUS [None]
